FAERS Safety Report 12871490 (Version 1)
Quarter: 2016Q4

REPORT INFORMATION
  Report Type: Spontaneous
  Country: US (occurrence: US)
  Receive Date: 20161020
  Receipt Date: 20161020
  Transmission Date: 20170207
  Serious: Yes (Death)
  Sender: FDA-Public Use
  Company Number: US-ROCHE-1844696

PATIENT
  Sex: Male

DRUGS (1)
  1. XELODA [Suspect]
     Active Substance: CAPECITABINE
     Indication: NEOPLASM
     Dosage: 2000 MG IN THE AM AND 1500 MG IN THE PM 7 DAYS ON. BY MOUTH
     Route: 048
     Dates: start: 20160806

REACTIONS (1)
  - Death [Fatal]
